FAERS Safety Report 20800771 (Version 3)
Quarter: 2022Q2

REPORT INFORMATION
  Report Type: Spontaneous
  Country: RU (occurrence: RU)
  Receive Date: 20220509
  Receipt Date: 20220517
  Transmission Date: 20220721
  Serious: Yes (Other)
  Sender: FDA-Public Use
  Company Number: RU-TOPROL-2022000144

PATIENT
  Sex: Female

DRUGS (5)
  1. METOPROLOL SUCCINATE [Suspect]
     Active Substance: METOPROLOL SUCCINATE
     Indication: Product used for unknown indication
     Route: 048
  2. FENSPIRIDE HYDROCHLORIDE [Concomitant]
     Active Substance: FENSPIRIDE HYDROCHLORIDE
     Indication: Product used for unknown indication
     Route: 065
  3. FOSTER [Concomitant]
     Active Substance: BECLOMETHASONE\FORMOTEROL
     Indication: Product used for unknown indication
     Route: 065
  4. SINGULAIR [Concomitant]
     Active Substance: MONTELUKAST SODIUM
     Indication: Product used for unknown indication
     Route: 065
  5. SYMBICORT [Concomitant]
     Active Substance: BUDESONIDE\FORMOTEROL FUMARATE DIHYDRATE
     Indication: Product used for unknown indication
     Route: 065

REACTIONS (9)
  - COVID-19 pneumonia [Unknown]
  - Asthma [Unknown]
  - Pharyngeal oedema [Unknown]
  - Nasal oedema [Unknown]
  - Oedema [Unknown]
  - COVID-19 [Unknown]
  - Tachycardia [Unknown]
  - Dyspnoea [Unknown]
  - Dysphonia [Unknown]
